FAERS Safety Report 24301133 (Version 1)
Quarter: 2024Q3

REPORT INFORMATION
  Report Type: Spontaneous
  Country: GB (occurrence: GB)
  Receive Date: 20240910
  Receipt Date: 20240910
  Transmission Date: 20241017
  Serious: Yes (Other)
  Sender: ACCORD
  Company Number: None

PATIENT
  Age: 81 Year
  Sex: Female

DRUGS (13)
  1. SERTRALINE [Suspect]
     Active Substance: SERTRALINE HYDROCHLORIDE
     Indication: Product used for unknown indication
     Dosage: SERTRALINE 100 MG TABLETS 1 OM
  2. AMISULPRIDE [Suspect]
     Active Substance: AMISULPRIDE
     Indication: Product used for unknown indication
     Dosage: AMISULPRIDE 50 MG TABLETS 1 ON
  3. OMEPRAZOLE [Suspect]
     Active Substance: OMEPRAZOLE
     Indication: Product used for unknown indication
     Dosage: OMEPRAZOLE 20 MG GASTRO-RESISTANT CAPSULES 1 BD AM/TEA
  4. INDAPAMIDE [Suspect]
     Active Substance: INDAPAMIDE
     Indication: Product used for unknown indication
     Dosage: INDAPAMIDE 2.5 MG TABLETS 1 OM
  5. BISOPROLOL [Concomitant]
     Active Substance: BISOPROLOL\BISOPROLOL FUMARATE
     Dosage: BISOPROLOL 5 MG TABLETS 1 OM
  6. IRBESARTAN [Concomitant]
     Active Substance: IRBESARTAN
     Dosage: IRBESARTAN 300 MG TABLETS 1 OM
  7. MEMANTINE [Concomitant]
     Active Substance: MEMANTINE
     Dosage: MEMANTINE 20 MG TABLETS 1 OM
  8. ALBUTEROL [Concomitant]
     Active Substance: ALBUTEROL
  9. LORAZEPAM [Concomitant]
     Active Substance: LORAZEPAM
     Dosage: LORAZEPAM 1MG TABLETS HALF TABLET BD AM/TEA
  10. VENTOLIN [Concomitant]
     Active Substance: ALBUTEROL SULFATE
     Dosage: VENTOLIN 200 MICROGRAMS / DOSE ACCUHALER 1 PUFF PRN
  11. ACETAMINOPHEN [Concomitant]
     Active Substance: ACETAMINOPHEN
     Dosage: PARACETAMOL 500MG TABLETS 1-2 QDS PRN
  12. AMLODIPINE [Concomitant]
     Active Substance: AMLODIPINE BESYLATE
     Dosage: AMLODIPINE 10 MG TABLETS 1 OM
  13. SERTRALINE [Suspect]
     Active Substance: SERTRALINE HYDROCHLORIDE
     Indication: Product used for unknown indication
     Dosage: SERTRALINE 50 MG TABLETS 1 OM

REACTIONS (5)
  - Inappropriate antidiuretic hormone secretion [Recovered/Resolved]
  - Lethargy [Unknown]
  - Muscular weakness [Unknown]
  - Mobility decreased [Unknown]
  - Hyponatraemia [Recovered/Resolved]
